FAERS Safety Report 7816601-4 (Version None)
Quarter: 2011Q4

REPORT INFORMATION
  Report Type: 
  Country: None (occurrence: None)
  Receive Date: 20111017
  Receipt Date: 20111007
  Transmission Date: 20120403
  Serious: Yes (Other)
  Sender: FDA-Public Use
  Company Number: US-US-EMD SERONO, INC.-231637J10USA

PATIENT
  Sex: Female
  Weight: 77 kg

DRUGS (6)
  1. PROTONIX [Concomitant]
     Indication: ABDOMINAL DISCOMFORT
  2. CYMBALTA [Concomitant]
     Indication: PAIN IN EXTREMITY
  3. REBIF [Suspect]
     Indication: MULTIPLE SCLEROSIS
     Route: 058
     Dates: start: 20080815
  4. LIPITOR [Concomitant]
     Indication: BLOOD CHOLESTEROL INCREASED
  5. TYLENOL EIGHT HOUR [Concomitant]
     Indication: PREMEDICATION
  6. ALTACE [Concomitant]
     Indication: HYPERTENSION

REACTIONS (2)
  - IMPAIRED HEALING [None]
  - STAPHYLOCOCCAL INFECTION [None]
